FAERS Safety Report 4595593-8 (Version None)
Quarter: 2005Q1

REPORT INFORMATION
  Report Type: 
  Country: None (occurrence: None)
  Receive Date: 20050224
  Receipt Date: 20050216
  Transmission Date: 20050727
  Serious: Yes (Hospitalization, Other)
  Sender: FDA-Public Use
  Company Number: 05-000128

PATIENT
  Age: 27 Year
  Sex: Female
  Weight: 222.2 kg

DRUGS (1)
  1. OVCON-50 [Suspect]
     Indication: MENSTRUATION IRREGULAR
     Dosage: 50/1000 UG TID, ORAL
     Route: 048
     Dates: start: 20040701, end: 20041001

REACTIONS (4)
  - DEEP VEIN THROMBOSIS [None]
  - DIABETES MELLITUS [None]
  - PAIN IN EXTREMITY [None]
  - PULMONARY EMBOLISM [None]
